FAERS Safety Report 9988089 (Version 2)
Quarter: 2014Q1

REPORT INFORMATION
  Report Type: Report from Study
  Country: DE (occurrence: DE)
  Receive Date: 20140308
  Receipt Date: 20140308
  Transmission Date: 20141002
  Serious: Yes (Other)
  Sender: FDA-Public Use
  Company Number: DE-ROCHE-709172

PATIENT
  Age: 59 Year
  Sex: Male
  Weight: 67 kg

DRUGS (14)
  1. MYCOPHENOLATE MOFETIL [Suspect]
     Indication: RENAL TRANSPLANT
     Dosage: LAST DOSE PRIOR TO SAE: 01 JUNE 2010.
     Route: 048
     Dates: start: 20091103, end: 20100601
  2. MYCOPHENOLATE MOFETIL [Suspect]
     Dosage: DOSE REDUCED
     Route: 048
  3. MYCOPHENOLATE MOFETIL [Suspect]
     Dosage: DOSE: 500-0-250MG.
     Route: 048
  4. MYCOPHENOLATE MOFETIL [Suspect]
     Route: 048
  5. TACROLIMUS [Suspect]
     Indication: RENAL TRANSPLANT
     Dosage: LAST DOSE PRIOR TO SAE: 09 JUNE 2010,ADVAGRAF, TEMPORARILY INTERRUPTED
     Route: 048
     Dates: start: 20091103, end: 20100611
  6. PREDNISOLON [Suspect]
     Indication: RENAL TRANSPLANT
     Route: 065
  7. BISOPROLOL [Concomitant]
     Route: 065
  8. MOXOMIDIN [Concomitant]
     Route: 065
  9. AMLODIPINE [Concomitant]
  10. MOBIC [Concomitant]
  11. CINACALCET [Concomitant]
  12. COTRIM FORTE [Concomitant]
     Route: 065
  13. CLOPIDOGREL [Concomitant]
     Route: 065
  14. PANTOCID [Concomitant]

REACTIONS (4)
  - Leukopenia [Recovered/Resolved]
  - C-reactive protein increased [Recovered/Resolved]
  - Pyrexia [Recovered/Resolved]
  - Leukocytosis [Recovered/Resolved]
